FAERS Safety Report 25627657 (Version 1)
Quarter: 2025Q3

REPORT INFORMATION
  Report Type: Spontaneous
  Country: CN (occurrence: CN)
  Receive Date: 20250731
  Receipt Date: 20250731
  Transmission Date: 20251021
  Serious: Yes (Other)
  Sender: MACLEODS
  Company Number: CN-MLMSERVICE-20250714-PI577785-00202-1

PATIENT

DRUGS (10)
  1. LINEZOLID [Suspect]
     Active Substance: LINEZOLID
     Indication: Mycobacterial infection
     Route: 042
     Dates: start: 20230419, end: 20230501
  2. LINEZOLID [Suspect]
     Active Substance: LINEZOLID
     Indication: Mycobacterial infection
  3. CEFOXITIN [Concomitant]
     Active Substance: CEFOXITIN SODIUM
     Route: 042
     Dates: start: 20230419, end: 20230506
  4. CEFOXITIN [Concomitant]
     Active Substance: CEFOXITIN SODIUM
  5. MOXIFLOXACIN [Concomitant]
     Active Substance: MOXIFLOXACIN
     Route: 048
     Dates: start: 20230419, end: 20240924
  6. MOXIFLOXACIN [Concomitant]
     Active Substance: MOXIFLOXACIN
  7. AMIKACIN [Concomitant]
     Active Substance: AMIKACIN
     Route: 042
     Dates: start: 20230419, end: 20230718
  8. AMIKACIN [Concomitant]
     Active Substance: AMIKACIN
     Route: 030
     Dates: start: 20230718, end: 20231031
  9. IMIPENEM AND CILASTATIN SODIUM [Concomitant]
     Active Substance: CILASTATIN SODIUM\IMIPENEM
     Route: 042
     Dates: start: 20230419, end: 20230718
  10. IMIPENEM AND CILASTATIN SODIUM [Concomitant]
     Active Substance: CILASTATIN SODIUM\IMIPENEM

REACTIONS (1)
  - Thrombocytopenia [Unknown]

NARRATIVE: CASE EVENT DATE: 20230401
